FAERS Safety Report 9344168 (Version 2)
Quarter: 2013Q2

REPORT INFORMATION
  Report Type: Spontaneous
  Country: US (occurrence: None)
  Receive Date: 20130610
  Receipt Date: 20130617
  Transmission Date: 20140414
  Serious: Yes (Death)
  Sender: FDA-Public Use
  Company Number: 2013-2423

PATIENT
  Age: 70 Year
  Sex: Male

DRUGS (1)
  1. SOMATULINE DEPOT [Suspect]
     Indication: CARCINOID SYNDROME
     Dosage: (120 MG, 1 IN 14
     Dates: start: 20100527

REACTIONS (6)
  - Injection site pain [None]
  - Injection site mass [None]
  - Metastatic neoplasm [None]
  - Hepatic failure [None]
  - Inappropriate schedule of drug administration [None]
  - Metastases to liver [None]
